FAERS Safety Report 5611666-2 (Version None)
Quarter: 2008Q1

REPORT INFORMATION
  Report Type: 
  Country: None (occurrence: None)
  Receive Date: 20080201
  Receipt Date: 20080123
  Transmission Date: 20080703
  Serious: Yes (Hospitalization, Other)
  Sender: FDA-Public Use
  Company Number: US-ABBOTT-08P-163-0434938-00

PATIENT
  Sex: Female
  Weight: 70.37 kg

DRUGS (5)
  1. SYNTHROID [Suspect]
     Indication: DRUG TOLERANCE
     Route: 048
     Dates: start: 20020101, end: 20020801
  2. SYNTHROID [Suspect]
     Indication: HYPOTHYROIDISM
     Route: 048
     Dates: start: 20020401, end: 20020401
  3. SYNTHROID [Suspect]
     Route: 048
     Dates: start: 20020401
  4. SYNTHROID [Suspect]
     Route: 048
     Dates: start: 20020901
  5. CALCIUM GLUCONATE [Concomitant]
     Indication: OSTEOPENIA
     Route: 048

REACTIONS (4)
  - ANXIETY [None]
  - ATRIAL FIBRILLATION [None]
  - BREAST CANCER [None]
  - HYPOTENSION [None]
